FAERS Safety Report 4530583-2 (Version None)
Quarter: 2004Q4

REPORT INFORMATION
  Report Type: 
  Country: None (occurrence: None)
  Receive Date: 20041216
  Receipt Date: 20041203
  Transmission Date: 20050328
  Serious: Yes (Other)
  Sender: FDA-Public Use
  Company Number: 2004104980

PATIENT
  Age: 40 Year
  Sex: Male

DRUGS (2)
  1. DIFLUCAN [Suspect]
     Indication: PROPHYLAXIS
  2. VALORON (TILIDINE) [Suspect]
     Indication: PAIN
     Dosage: 100 MG, ORAL
     Route: 048
     Dates: start: 19940101, end: 20041130

REACTIONS (5)
  - DRUG WITHDRAWAL SYNDROME [None]
  - ERECTILE DYSFUNCTION [None]
  - MEMORY IMPAIRMENT [None]
  - PAIN IN EXTREMITY [None]
  - PREMATURE AGEING [None]
